FAERS Safety Report 7877770-3 (Version None)
Quarter: 2011Q4

REPORT INFORMATION
  Report Type: 
  Country: None (occurrence: None)
  Receive Date: 20111031
  Receipt Date: 20111031
  Transmission Date: 20120403
  Serious: Yes (Hospitalization)
  Sender: FDA-Public Use
  Company Number: None

PATIENT
  Sex: Female
  Weight: 91 kg

DRUGS (6)
  1. ZOLOFT [Concomitant]
     Route: 048
  2. GILENYA [Suspect]
     Indication: MULTIPLE SCLEROSIS
     Dosage: 0.5 MG
     Route: 048
  3. CETIRIZINE HCL [Concomitant]
     Route: 048
  4. AMBIEN [Concomitant]
     Route: 048
  5. COPAXONE [Concomitant]
     Route: 048
  6. MINOCYCLINE HCL [Concomitant]
     Route: 048

REACTIONS (3)
  - CELLULITIS [None]
  - HERPES ZOSTER [None]
  - ABSCESS [None]
